FAERS Safety Report 7750830-3 (Version None)
Quarter: 2011Q3

REPORT INFORMATION
  Report Type: 
  Country: None (occurrence: None)
  Receive Date: 20110914
  Receipt Date: 20110908
  Transmission Date: 20111222
  Serious: Yes (Other)
  Sender: FDA-Public Use
  Company Number: US-ABBOTT-11P-163-0852584-00

PATIENT
  Age: 68 Year
  Sex: Male
  Weight: 81.72 kg

DRUGS (5)
  1. TOPROL-XL [Concomitant]
     Indication: PRODUCT USED FOR UNKNOWN INDICATION
  2. FLOMAX [Concomitant]
     Indication: PRODUCT USED FOR UNKNOWN INDICATION
  3. VESICARE [Concomitant]
     Indication: PRODUCT USED FOR UNKNOWN INDICATION
  4. NIASPAN [Suspect]
     Indication: HIGH DENSITY LIPOPROTEIN DECREASED
     Dosage: AT NIGHT
     Dates: start: 20060101
  5. LIPITOR [Concomitant]
     Indication: CORONARY ARTERY DISEASE

REACTIONS (8)
  - HYPERHIDROSIS [None]
  - MALAISE [None]
  - FLUSHING [None]
  - TOOTH LOSS [None]
  - DYSPHONIA [None]
  - CONCUSSION [None]
  - GASTROOESOPHAGEAL REFLUX DISEASE [None]
  - MUCOUS MEMBRANE DISORDER [None]
